FAERS Safety Report 21341850 (Version 2)
Quarter: 2025Q2

REPORT INFORMATION
  Report Type: Spontaneous
  Country: US (occurrence: US)
  Receive Date: 20220916
  Receipt Date: 20250515
  Transmission Date: 20250716
  Serious: No
  Sender: SANOFI AVENTIS
  Company Number: US-SANOFI-01083686

PATIENT
  Age: 58 Year
  Sex: Female
  Weight: 86.1 kg

DRUGS (12)
  1. DUPIXENT [Suspect]
     Active Substance: DUPILUMAB
     Indication: Dermatitis atopic
     Dosage: 300 MG, QOW
     Route: 058
     Dates: start: 20250322
  2. BENZONATATE [Concomitant]
     Active Substance: BENZONATATE
  3. KLONOPIN [Concomitant]
     Active Substance: CLONAZEPAM
  4. LIPITOR [Concomitant]
     Active Substance: ATORVASTATIN CALCIUM
  5. ZOLOFT [Concomitant]
     Active Substance: SERTRALINE HYDROCHLORIDE
  6. NEXIUM I.V. [Concomitant]
     Active Substance: ESOMEPRAZOLE SODIUM
  7. ESTROGENS [Concomitant]
     Active Substance: ESTROGENS
  8. VITAMIN D2 [Concomitant]
     Active Substance: ERGOCALCIFEROL
  9. IRON [Concomitant]
     Active Substance: IRON
  10. COSENTYX [Concomitant]
     Active Substance: SECUKINUMAB
  11. MODERNA COVID-19 VACCINE [Concomitant]
     Active Substance: ELASOMERAN
     Indication: Immunisation
  12. PREMARIN [Concomitant]
     Active Substance: ESTROGENS, CONJUGATED

REACTIONS (4)
  - Gastric infection [Not Recovered/Not Resolved]
  - Weight decreased [Unknown]
  - Skin haemorrhage [Recovering/Resolving]
  - Anger [Unknown]

NARRATIVE: CASE EVENT DATE: 20250101
